FAERS Safety Report 25517658 (Version 2)
Quarter: 2025Q3

REPORT INFORMATION
  Report Type: Spontaneous
  Country: US (occurrence: US)
  Receive Date: 20250704
  Receipt Date: 20250810
  Transmission Date: 20251021
  Serious: No
  Sender: ALEXION PHARMACEUTICALS
  Company Number: US-AstraZeneca-CH-00899400A

PATIENT
  Sex: Male

DRUGS (1)
  1. LOKELMA [Suspect]
     Active Substance: SODIUM ZIRCONIUM CYCLOSILICATE
     Route: 065
     Dates: start: 20250614, end: 20250624

REACTIONS (4)
  - Erythema [Unknown]
  - Rash [Unknown]
  - Gingival disorder [Unknown]
  - Pruritus [Unknown]
